FAERS Safety Report 7837693 (Version 2)
Quarter: 2013Q1

REPORT INFORMATION
  Report Type: Spontaneous
  Country: US (occurrence: US)
  Receive Date: 20110302
  Receipt Date: 20130102
  Transmission Date: 20140127
  Serious: Yes (Hospitalization, Other)
  Sender: FDA-Public Use
  Company Number: US-PFIZER INC-2009276453

PATIENT
  Age: 26 Year
  Sex: Female

DRUGS (3)
  1. DILANTIN [Suspect]
     Indication: CONVULSION
     Dosage: 100 MG, 3X/DAY
     Route: 042
     Dates: start: 20071115, end: 20071117
  2. DILANTIN [Suspect]
     Dosage: 100 MG, UNK
     Route: 042
     Dates: start: 20071120, end: 20071212
  3. ATIVAN [Concomitant]
     Indication: CONVULSION
     Dosage: 2 MG, UNK
     Route: 042
     Dates: start: 20071121

REACTIONS (2)
  - Stevens-Johnson syndrome [Unknown]
  - Drug reaction with eosinophilia and systemic symptoms [Recovered/Resolved]
